FAERS Safety Report 10270996 (Version 1)
Quarter: 2014Q2

REPORT INFORMATION
  Report Type: Spontaneous
  Country: GB (occurrence: None)
  Receive Date: 20140627
  Receipt Date: 20140627
  Transmission Date: 20141212
  Serious: Yes (Disabling, Other)
  Sender: FDA-Public Use
  Company Number: AUR-APL-2014-06577

PATIENT
  Age: 69 Year
  Sex: Female
  Weight: 84.3 kg

DRUGS (3)
  1. NAPROXEN TABLETS 500 MG (NAPROXEN) TABLET, 500MG [Suspect]
     Indication: PAIN
     Route: 048
     Dates: start: 20140528, end: 20140528
  2. CO-AMOXICLAV (AMOXICILLLIN SODIUM, CLAVULANATE POTASSIUM) [Concomitant]
  3. PREGABALIN (PREGABALIN) [Concomitant]

REACTIONS (6)
  - Swelling face [None]
  - Peripheral swelling [None]
  - Muscular weakness [None]
  - Peripheral swelling [None]
  - Mobility decreased [None]
  - Walking aid user [None]
